FAERS Safety Report 23747882 (Version 1)
Quarter: 2024Q2

REPORT INFORMATION
  Report Type: Spontaneous
  Country: US (occurrence: US)
  Receive Date: 20240416
  Receipt Date: 20240416
  Transmission Date: 20240716
  Serious: Yes (Other)
  Sender: FDA-Public Use
  Company Number: US-JNJFOC-20240430682

PATIENT
  Age: 69 Year
  Sex: Male
  Weight: 96.248 kg

DRUGS (2)
  1. XARELTO [Suspect]
     Active Substance: RIVAROXABAN
     Indication: Deep vein thrombosis
     Route: 048
  2. XARELTO [Suspect]
     Active Substance: RIVAROXABAN
     Dosage: LAST DOSE OF XARELTO WAS ON FRIDAY, 05-APR-2024
     Route: 048
     Dates: start: 2018

REACTIONS (4)
  - Pulmonary embolism [Unknown]
  - Cataract [Unknown]
  - Deep vein thrombosis [Not Recovered/Not Resolved]
  - Memory impairment [Unknown]
